FAERS Safety Report 4383495-1 (Version None)
Quarter: 2004Q2

REPORT INFORMATION
  Report Type: 
  Country: None (occurrence: None)
  Receive Date: 20040621
  Receipt Date: 20040607
  Transmission Date: 20050107
  Serious: Yes (Hospitalization)
  Sender: FDA-Public Use
  Company Number: 2004UW11839

PATIENT
  Age: 74 Year
  Sex: Male
  Weight: 69.8539 kg

DRUGS (3)
  1. CRESTOR [Suspect]
     Indication: HYPERLIPIDAEMIA
     Dosage: 10 MG PO
     Route: 048
     Dates: end: 20040401
  2. VIOXX [Concomitant]
  3. NORVASC [Concomitant]

REACTIONS (12)
  - ABDOMINAL PAIN UPPER [None]
  - ANAEMIA [None]
  - BLOOD TRIGLYCERIDES INCREASED [None]
  - DRUG TOLERANCE DECREASED [None]
  - ESCHERICHIA URINARY TRACT INFECTION [None]
  - HYPERTENSION [None]
  - MULTIPLE MYELOMA [None]
  - MUSCLE CRAMP [None]
  - MYALGIA [None]
  - PROTEINURIA [None]
  - RENAL CYST [None]
  - RENAL FAILURE ACUTE [None]
